FAERS Safety Report 7882958-1 (Version None)
Quarter: 2011Q4

REPORT INFORMATION
  Report Type: 
  Country: None (occurrence: None)
  Receive Date: 20111101
  Receipt Date: 20110622
  Transmission Date: 20120403
  Serious: No
  Sender: FDA-Public Use
  Company Number: US-AMGEN-USASP2011032166

PATIENT
  Age: 50 Year
  Sex: Female

DRUGS (2)
  1. ENBREL [Suspect]
     Indication: RHEUMATOID ARTHRITIS
     Dosage: 50 MG, QWK
     Dates: start: 20100210, end: 20110615
  2. METHOTREXATE [Concomitant]
     Dosage: UNK
     Dates: start: 20070101

REACTIONS (6)
  - LIMB INJURY [None]
  - CELLULITIS [None]
  - INJECTION SITE REACTION [None]
  - INJECTION SITE PAIN [None]
  - OPEN WOUND [None]
  - INCREASED TENDENCY TO BRUISE [None]
